FAERS Safety Report 16290868 (Version 2)
Quarter: 2019Q2

REPORT INFORMATION
  Report Type: Spontaneous
  Country: US (occurrence: US)
  Receive Date: 20190509
  Receipt Date: 20190510
  Transmission Date: 20190711
  Serious: No
  Sender: FDA-Public Use
  Company Number: US-PFIZER INC-2019194251

PATIENT
  Age: 71 Year
  Sex: Female
  Weight: 59 kg

DRUGS (1)
  1. ATORVASTATIN CALCIUM. [Suspect]
     Active Substance: ATORVASTATIN CALCIUM
     Indication: BLOOD CHOLESTEROL ABNORMAL
     Dosage: 20 MG, 1X/DAY (NIGHT)
     Route: 048

REACTIONS (3)
  - Weight decreased [Unknown]
  - Drug ineffective [Unknown]
  - Blood pressure decreased [Unknown]
